FAERS Safety Report 7010847-3 (Version None)
Quarter: 2010Q3

REPORT INFORMATION
  Report Type: 
  Country: None (occurrence: None)
  Receive Date: 20100923
  Receipt Date: 20100914
  Transmission Date: 20110219
  Serious: Yes (Hospitalization)
  Sender: FDA-Public Use
  Company Number: FR-ABBOTT-07P-056-0367233-00

PATIENT
  Age: 74 Year
  Sex: Male

DRUGS (9)
  1. FENOFIBRATE [Suspect]
     Indication: HYPERLIPIDAEMIA
     Dosage: 200 MG DAILY
     Route: 048
  2. LANSOPRAZOLE [Suspect]
     Indication: PRODUCT USED FOR UNKNOWN INDICATION
     Dosage: 60 MG DAILY
     Route: 048
  3. XANAX [Suspect]
     Indication: ANXIETY
     Dosage: 1 MG DAILY
     Route: 048
  4. AMAREL [Suspect]
     Indication: TYPE 2 DIABETES MELLITUS
     Dosage: 1 DOSAGE FORM DAILY
     Route: 048
  5. GLUCOPHAGE [Suspect]
     Indication: TYPE 2 DIABETES MELLITUS
     Dosage: 1700 MG DAILY
     Route: 048
  6. ANAFRANIL [Suspect]
     Indication: DEPRESSION
     Dosage: 50 MG DAILY
     Route: 048
  7. KARDEGIC [Concomitant]
     Indication: PRODUCT USED FOR UNKNOWN INDICATION
     Dosage: 75 MG DAILY
     Route: 048
  8. URBANYL [Concomitant]
     Indication: ANXIETY
     Dosage: 10 MG DAILY
     Route: 048
  9. MACROGOL [Concomitant]
     Indication: CONSTIPATION
     Dosage: 3 DOSAGE FORMS DAILY
     Route: 048

REACTIONS (5)
  - ANAEMIA [None]
  - BETA 2 MICROGLOBULIN INCREASED [None]
  - ECZEMA [None]
  - PRURITUS [None]
  - SKIN LESION [None]
